FAERS Safety Report 20628555 (Version 1)
Quarter: 2022Q1

REPORT INFORMATION
  Report Type: Spontaneous
  Country: JP (occurrence: JP)
  Receive Date: 20220323
  Receipt Date: 20220323
  Transmission Date: 20220423
  Serious: Yes (Hospitalization)
  Sender: FDA-Public Use
  Company Number: JP-Eisai-202109451_LEN-HCC_P_1

PATIENT
  Age: 74 Year
  Sex: Male
  Weight: 64 kg

DRUGS (3)
  1. LENVATINIB [Suspect]
     Active Substance: LENVATINIB
     Indication: Hepatocellular carcinoma
     Route: 048
     Dates: start: 20190723, end: 20190807
  2. LENVATINIB [Suspect]
     Active Substance: LENVATINIB
     Indication: Metastases to liver
     Route: 048
     Dates: start: 20190828, end: 20190924
  3. LENVATINIB [Suspect]
     Active Substance: LENVATINIB
     Indication: Gallbladder cancer
     Route: 048
     Dates: start: 20191123, end: 20191227

REACTIONS (1)
  - Thyroiditis [Recovering/Resolving]

NARRATIVE: CASE EVENT DATE: 20190810
